FAERS Safety Report 8637056 (Version 2)
Quarter: 2012Q4

REPORT INFORMATION
  Report Type: 
  Country: DE (occurrence: DE)
  Receive Date: 20120626
  Receipt Date: 20121126
  Transmission Date: 20130627
  Serious: Yes (Hospitalization)
  Sender: FDA-Public Use
  Company Number: DE-ELI_LILLY_AND_COMPANY-DE201206004154

PATIENT
  Age: 42 Year
  Sex: Female
  Weight: 50 kg

DRUGS (7)
  1. CYMBALTA [Suspect]
     Dosage: Unk, unk
     Route: 048
  2. VIVINOX [Concomitant]
     Dosage: 250 mg, single
     Route: 048
  3. MAGNESIUM [Concomitant]
     Dosage: Unk, UNK
     Route: 048
  4. LYRICA [Concomitant]
     Dosage: Unk, UNK
     Route: 048
  5. FEXOFENADINE [Concomitant]
     Dosage: Unk, Unk
     Route: 048
  6. ALCOHOL [Concomitant]
  7. VALIUM [Concomitant]
     Dosage: unk, unk

REACTIONS (4)
  - Coma [Recovered/Resolved]
  - Somnolence [Recovered/Resolved]
  - Gastrointestinal sounds abnormal [Recovered/Resolved]
  - Toxicity to various agents [Unknown]
